FAERS Safety Report 10034894 (Version 2)
Quarter: 2014Q2

REPORT INFORMATION
  Report Type: Report from Study
  Country: US (occurrence: US)
  Receive Date: 20140325
  Receipt Date: 20140624
  Transmission Date: 20141212
  Serious: Yes (Death, Hospitalization, Other)
  Sender: FDA-Public Use
  Company Number: US-ALEXION-A200901365

PATIENT
  Age: 27 Year
  Sex: Female
  Weight: 69.8 kg

DRUGS (1)
  1. SOLIRIS [Suspect]
     Indication: PAROXYSMAL NOCTURNAL HAEMOGLOBINURIA
     Dosage: UNK, Q 9DAYS
     Route: 042
     Dates: start: 20080710

REACTIONS (5)
  - Aspergillus infection [Fatal]
  - Platelet count decreased [Unknown]
  - Haemoglobin decreased [Unknown]
  - Abdominal pain [Unknown]
  - Dyspnoea [Unknown]
